FAERS Safety Report 20896153 (Version 2)
Quarter: 2022Q2

REPORT INFORMATION
  Report Type: Report from Study
  Country: US (occurrence: US)
  Receive Date: 20220531
  Receipt Date: 20220606
  Transmission Date: 20220721
  Serious: No
  Sender: FDA-Public Use
  Company Number: US-NOVARTISTESTPH-NVSC2022US124448

PATIENT
  Sex: Male
  Weight: 99.79 kg

DRUGS (1)
  1. ENTRESTO [Suspect]
     Active Substance: SACUBITRIL\VALSARTAN
     Indication: Myocardial infarction
     Dosage: 1 DOSAGE FORM,(24.26 MG) BID
     Route: 048
     Dates: start: 20220519

REACTIONS (2)
  - Cough [Recovering/Resolving]
  - Product use in unapproved indication [Unknown]
